FAERS Safety Report 22030796 (Version 3)
Quarter: 2023Q2

REPORT INFORMATION
  Report Type: Spontaneous
  Country: CA (occurrence: CA)
  Receive Date: 20230223
  Receipt Date: 20230613
  Transmission Date: 20230722
  Serious: Yes (Other)
  Sender: FDA-Public Use
  Company Number: CA-PFIZER INC-PV202300035102

PATIENT
  Age: 51 Year
  Sex: Male
  Weight: 150 kg

DRUGS (4)
  1. METHOTREXATE SODIUM [Suspect]
     Active Substance: METHOTREXATE SODIUM
     Indication: Crohn^s disease
     Dosage: UNK
     Route: 048
     Dates: start: 20230228
  2. SYNTHROID [Concomitant]
     Active Substance: LEVOTHYROXINE SODIUM
     Indication: Hypothyroidism
     Dosage: UNK
  3. PREDNISONE [Concomitant]
     Active Substance: PREDNISONE
     Dosage: MULTIPLE COURSES
  4. ASACOL [Concomitant]
     Active Substance: MESALAMINE

REACTIONS (7)
  - Crohn^s disease [Unknown]
  - Rectal haemorrhage [Unknown]
  - Off label use [Unknown]
  - Drug ineffective [Unknown]
  - Abdominal pain lower [Unknown]
  - Abnormal loss of weight [Unknown]
  - Arthralgia [Unknown]

NARRATIVE: CASE EVENT DATE: 20230501
